FAERS Safety Report 5536731-X (Version None)
Quarter: 2007Q4

REPORT INFORMATION
  Report Type: 
  Country: None (occurrence: None)
  Receive Date: 20071206
  Receipt Date: 20070504
  Transmission Date: 20080405
  Serious: Yes (Other)
  Sender: FDA-Public Use
  Company Number: US-AMGEN-US197322

PATIENT
  Sex: Female
  Weight: 52.7 kg

DRUGS (21)
  1. ENBREL [Suspect]
     Indication: RHEUMATOID ARTHRITIS
     Route: 058
     Dates: start: 20000616, end: 20060925
  2. PLAQUENIL [Concomitant]
     Route: 065
     Dates: start: 19991101
  3. PREVACID [Concomitant]
     Route: 065
     Dates: start: 20011002
  4. MOBIC [Concomitant]
     Route: 065
     Dates: start: 20050128
  5. TYLENOL [Concomitant]
     Route: 065
  6. ULTRAM [Concomitant]
     Route: 065
     Dates: start: 20061111
  7. PREDNISONE TAB [Concomitant]
     Route: 065
     Dates: start: 19990119
  8. HYOSCYAMINE [Concomitant]
     Route: 065
     Dates: start: 20050101
  9. FOLIC ACID [Concomitant]
     Route: 065
     Dates: start: 19991119, end: 20060929
  10. METHOTREXATE [Concomitant]
     Route: 065
     Dates: start: 19991112, end: 20060925
  11. FOSAMAX [Concomitant]
     Route: 048
     Dates: start: 20000225, end: 20060925
  12. ALLEREST [Concomitant]
     Dates: start: 20050119
  13. CALTRATE [Concomitant]
     Route: 048
     Dates: start: 20050331
  14. ZANTAC [Concomitant]
     Dates: start: 19991119, end: 20020115
  15. LEVSIN [Concomitant]
     Route: 048
     Dates: start: 20020724
  16. TRAZODONE HCL [Concomitant]
     Route: 048
     Dates: start: 20050119, end: 20050711
  17. VALTREX [Concomitant]
     Route: 048
     Dates: start: 20040303, end: 20040616
  18. CLARITIN [Concomitant]
     Route: 048
     Dates: start: 20030212, end: 20050119
  19. CELEBREX [Concomitant]
     Route: 048
     Dates: start: 20011002, end: 20050331
  20. REGLAN [Concomitant]
     Dates: start: 19991119, end: 20020605
  21. PREMPRO (WYETH-AYERST) [Concomitant]
     Dates: start: 19990119, end: 20021211

REACTIONS (5)
  - BREAST CANCER [None]
  - COLITIS COLLAGENOUS [None]
  - LUNG DISORDER [None]
  - MIGRAINE [None]
  - OSTEOPENIA [None]
